FAERS Safety Report 7672117-X (Version None)
Quarter: 2011Q3

REPORT INFORMATION
  Report Type: 
  Country: None (occurrence: None)
  Receive Date: 20110809
  Receipt Date: 20110802
  Transmission Date: 20111222
  Serious: Yes (Other)
  Sender: FDA-Public Use
  Company Number: PHHY2011US04528

PATIENT
  Sex: Male

DRUGS (5)
  1. EXTAVIA [Suspect]
     Dosage: 0.25 MG, QOD (1 ML)
     Dates: start: 20110701
  2. PREDNISONE [Concomitant]
  3. EXTAVIA [Suspect]
     Indication: MULTIPLE SCLEROSIS
     Dosage: 0.25 MG, QOD
     Route: 058
     Dates: start: 20101129, end: 20110424
  4. ADVAIR DISKUS 100/50 [Concomitant]
  5. XANAX [Concomitant]

REACTIONS (6)
  - UPPER RESPIRATORY TRACT INFLAMMATION [None]
  - INJECTION SITE SWELLING [None]
  - DYSPNOEA [None]
  - INFLUENZA LIKE ILLNESS [None]
  - PULMONARY CONGESTION [None]
  - SINUS POLYP [None]
